FAERS Safety Report 15084362 (Version 1)
Quarter: 2018Q2

REPORT INFORMATION
  Report Type: Spontaneous
  Country: IT (occurrence: IT)
  Receive Date: 20180628
  Receipt Date: 20180628
  Transmission Date: 20180711
  Serious: Yes (Life-Threatening, Hospitalization)
  Sender: FDA-Public Use
  Company Number: IT-MYLANLABS-2018M1046525

PATIENT
  Age: 74 Year
  Sex: Male

DRUGS (2)
  1. RITUXIMAB. [Concomitant]
     Active Substance: RITUXIMAB
     Indication: LYMPHOMA
     Route: 065
  2. BENDAMUSTINE HYDROCHLORIDE. [Suspect]
     Active Substance: BENDAMUSTINE HYDROCHLORIDE
     Indication: LYMPHOMA
     Dosage: ON DAYS 1 AND 2
     Route: 065

REACTIONS (2)
  - Colitis ischaemic [Recovered/Resolved]
  - Intestinal pseudo-obstruction [Recovered/Resolved]
